FAERS Safety Report 6701563-3 (Version None)
Quarter: 2010Q2

REPORT INFORMATION
  Report Type: 
  Country: None (occurrence: None)
  Receive Date: 20100429
  Receipt Date: 20100423
  Transmission Date: 20101027
  Serious: Yes (Death, Hospitalization, Other)
  Sender: FDA-Public Use
  Company Number: US-CELGENEUS-163-21880-10040080

PATIENT
  Sex: Male

DRUGS (22)
  1. REVLIMID [Suspect]
     Indication: MULTIPLE MYELOMA
     Route: 048
     Dates: start: 20090601
  2. REVLIMID [Suspect]
     Route: 048
     Dates: start: 20081201
  3. REVLIMID [Suspect]
     Route: 048
     Dates: start: 20090501
  4. BORTEZOMIB [Suspect]
     Indication: MULTIPLE MYELOMA
     Route: 065
     Dates: start: 20090520
  5. CYCLOPHOSPHAMIDE [Suspect]
     Indication: MULTIPLE MYELOMA
     Route: 065
     Dates: start: 20090520
  6. DEXAMETHASONE [Suspect]
     Indication: MULTIPLE MYELOMA
     Route: 048
     Dates: start: 20090520
  7. DEXAMETHASONE [Suspect]
     Route: 048
     Dates: start: 20090420
  8. ALLOPURINOL [Concomitant]
     Indication: DRUG USE FOR UNKNOWN INDICATION
     Route: 048
  9. NORVASC [Concomitant]
     Indication: BLOOD PRESSURE
     Route: 048
  10. COMPAZINE [Concomitant]
     Indication: NAUSEA
     Route: 048
  11. COMPAZINE [Concomitant]
     Indication: VOMITING
  12. CYTOXAN [Concomitant]
     Indication: DRUG USE FOR UNKNOWN INDICATION
     Route: 048
  13. DARVOCET [Concomitant]
     Indication: PAIN
     Route: 048
  14. FLUCONAZOLE [Concomitant]
     Indication: DRUG USE FOR UNKNOWN INDICATION
     Route: 048
  15. INSULIN [Concomitant]
     Dosage: PER SLIDING SCALE
     Route: 065
  16. LEVAQUIN [Concomitant]
     Indication: DRUG USE FOR UNKNOWN INDICATION
     Route: 065
  17. METFORMIN [Concomitant]
     Route: 065
  18. ZOFRAN [Concomitant]
     Indication: NAUSEA
     Route: 065
  19. ZOFRAN [Concomitant]
     Indication: VOMITING
  20. PROTONIX [Concomitant]
     Indication: GASTROINTESTINAL DISORDER
     Route: 065
  21. SENOKOT [Concomitant]
     Indication: CONSTIPATION
     Route: 048
  22. VALTREX [Concomitant]
     Indication: INFECTION PROPHYLAXIS
     Route: 065

REACTIONS (5)
  - MULTIPLE MYELOMA [None]
  - PERICARDITIS [None]
  - PLATELET COUNT DECREASED [None]
  - RENAL FAILURE ACUTE [None]
  - SEPSIS [None]
